FAERS Safety Report 16080074 (Version 2)
Quarter: 2019Q2

REPORT INFORMATION
  Report Type: Spontaneous
  Country: JP (occurrence: JP)
  Receive Date: 20190315
  Receipt Date: 20190424
  Transmission Date: 20190711
  Serious: Yes (Other)
  Sender: FDA-Public Use
  Company Number: JP-SEATTLE GENETICS-2019SGN00723

PATIENT
  Age: 6 Year
  Sex: Male

DRUGS (11)
  1. ADCETRIS [Suspect]
     Active Substance: BRENTUXIMAB VEDOTIN
     Indication: HODGKIN^S DISEASE
     Dosage: 0.84 MILLIGRAM/KILOGRAM, Q2WEEKS
     Route: 041
     Dates: start: 20190222
  2. DOXORUBICIN HYDROCHLORIDE. [Concomitant]
     Active Substance: DOXORUBICIN HYDROCHLORIDE
     Dosage: UNK
     Route: 041
     Dates: start: 20190315
  3. VINBLASTINE SULFATE. [Concomitant]
     Active Substance: VINBLASTINE SULFATE
     Indication: HODGKIN^S DISEASE
     Dosage: UNK
     Route: 041
  4. VINBLASTINE SULFATE. [Concomitant]
     Active Substance: VINBLASTINE SULFATE
     Dosage: UNK
     Route: 041
     Dates: start: 20190222
  5. DACARBAZINE. [Concomitant]
     Active Substance: DACARBAZINE
     Dosage: UNK
     Route: 041
     Dates: start: 20190222
  6. DACARBAZINE. [Concomitant]
     Active Substance: DACARBAZINE
     Indication: HODGKIN^S DISEASE
     Dosage: UNK
     Route: 041
  7. DOXORUBICIN HYDROCHLORIDE. [Concomitant]
     Active Substance: DOXORUBICIN HYDROCHLORIDE
     Indication: HODGKIN^S DISEASE
     Dosage: UNK
     Route: 041
  8. ADCETRIS [Suspect]
     Active Substance: BRENTUXIMAB VEDOTIN
     Dosage: 0.84 MILLIGRAM/KILOGRAM, Q2WEEKS
     Route: 041
     Dates: start: 20190315
  9. DACARBAZINE. [Concomitant]
     Active Substance: DACARBAZINE
     Dosage: UNK
     Route: 041
     Dates: start: 20190315
  10. DOXORUBICIN HYDROCHLORIDE. [Concomitant]
     Active Substance: DOXORUBICIN HYDROCHLORIDE
     Dosage: UNK
     Route: 041
     Dates: start: 20190222
  11. VINBLASTINE SULFATE. [Concomitant]
     Active Substance: VINBLASTINE SULFATE
     Dosage: UNK
     Route: 041
     Dates: start: 20190315

REACTIONS (2)
  - Faecaloma [Recovered/Resolved]
  - Rectal ulcer [Recovered/Resolved]

NARRATIVE: CASE EVENT DATE: 20190303
